FAERS Safety Report 20079010 (Version 1)
Quarter: 2021Q4

REPORT INFORMATION
  Report Type: Spontaneous
  Country: US (occurrence: US)
  Receive Date: 20211117
  Receipt Date: 20211117
  Transmission Date: 20220303
  Serious: No
  Sender: FDA-Public Use
  Company Number: US-ALLERGAN-2129259US

PATIENT
  Sex: Female

DRUGS (1)
  1. COMBIGAN [Suspect]
     Active Substance: BRIMONIDINE TARTRATE\TIMOLOL MALEATE
     Indication: Glaucoma
     Dosage: START DATE: A LONG TIME AGO/USING IT FOR MANY YEARS

REACTIONS (6)
  - Glaucoma [Unknown]
  - Anxiety [Not Recovered/Not Resolved]
  - Speech disorder [Not Recovered/Not Resolved]
  - Body height decreased [Unknown]
  - Lacrimation increased [Not Recovered/Not Resolved]
  - Dry mouth [Not Recovered/Not Resolved]
